FAERS Safety Report 7098580-3 (Version None)
Quarter: 2010Q4

REPORT INFORMATION
  Report Type: 
  Country: None (occurrence: None)
  Receive Date: 20101112
  Receipt Date: 20101108
  Transmission Date: 20110411
  Serious: Yes (Other)
  Sender: FDA-Public Use
  Company Number: CHPA2010CA17413

PATIENT
  Age: 62 Year
  Sex: Female
  Weight: 81.633 kg

DRUGS (3)
  1. BUCKLEY'S UNKNOWN (NCH) [Suspect]
     Dosage: UNK, UNK
     Route: 048
  2. BUCKLEY'S CONGESTION AND COUGH (NCH) [Suspect]
     Indication: COUGH
     Dosage: UNK, UNK
     Route: 048
  3. BUCKLEY'S CONGESTION AND COUGH (NCH) [Suspect]
     Dosage: 2 TSP, TID
     Route: 048

REACTIONS (1)
  - DIABETES MELLITUS [None]
